FAERS Safety Report 18016908 (Version 3)
Quarter: 2021Q1

REPORT INFORMATION
  Report Type: Report from Study
  Country: US (occurrence: US)
  Receive Date: 20200713
  Receipt Date: 20210113
  Transmission Date: 20210419
  Serious: No
  Sender: FDA-Public Use
  Company Number: US-VANDA PHARMACEUTICALS, INC-2020TASUS004049

PATIENT
  Age: 82 Year
  Sex: Female

DRUGS (1)
  1. HETLIOZ [Suspect]
     Active Substance: TASIMELTEON
     Indication: NON-24-HOUR SLEEP-WAKE DISORDER
     Dosage: 20 MG, QD 1H BEFORE BEDTIME
     Route: 048
     Dates: start: 20200529, end: 20200618

REACTIONS (6)
  - Diarrhoea [Unknown]
  - Therapeutic response delayed [Unknown]
  - Insomnia [Unknown]
  - Depressive symptom [Unknown]
  - Headache [Unknown]
  - Malaise [Unknown]

NARRATIVE: CASE EVENT DATE: 202006
